FAERS Safety Report 8909293 (Version 2)
Quarter: 2013Q1

REPORT INFORMATION
  Report Type: Spontaneous
  Country: US (occurrence: None)
  Receive Date: 20121102
  Receipt Date: 20121119
  Transmission Date: 20140127
  Serious: Yes (Other)
  Sender: FDA-Public Use
  Company Number: 2012PROUSA02141

PATIENT
  Age: 72 Year
  Sex: Male
  Weight: 83.9 kg

DRUGS (7)
  1. PROVENGE (SIPULEUCEL-T) SUSPENSION, 250ML [Suspect]
     Indication: PROSTATE CANCER METASTATIC
     Dosage: 250 ML, SINGLE, INTRAVENOUS
     Route: 042
     Dates: start: 20120920, end: 20120920
  2. LUPRON (LEUPRORELIN ACETATE) [Concomitant]
  3. XGEVA (DENOSUMAB) [Concomitant]
  4. ASA (ACETYLSALICYLIC ACID) [Concomitant]
  5. CITRACAL (CALCIUM CITRATE) [Concomitant]
  6. CIALIS (TADALAFIL) [Concomitant]
  7. MULTIVITAMIN (VITAMIN NOS) [Concomitant]

REACTIONS (4)
  - Pseudomonas infection [None]
  - Device related infection [None]
  - Systemic candida [None]
  - Bacteraemia [None]
